FAERS Safety Report 10079351 (Version 1)
Quarter: 2014Q2

REPORT INFORMATION
  Report Type: Spontaneous
  Country: US (occurrence: None)
  Receive Date: 20140414
  Receipt Date: 20140414
  Transmission Date: 20141212
  Serious: No
  Sender: FDA-Public Use
  Company Number: None

PATIENT
  Age: 87 Year
  Sex: Female
  Weight: 68.95 kg

DRUGS (13)
  1. CARISOPRODOL [Suspect]
     Indication: MUSCLE SPASMS
     Dosage: 1 PILL
     Route: 048
     Dates: start: 20140321, end: 20140323
  2. LISINOPRIL [Concomitant]
  3. ZETIA [Concomitant]
  4. SYNTHROID [Concomitant]
  5. FLOVENT [Concomitant]
  6. NASACORT [Concomitant]
  7. PROAIR [Concomitant]
  8. ATROVENT (PRV) [Concomitant]
  9. VITAMIN [Concomitant]
  10. CALCIUM [Concomitant]
  11. CRAN. TAB [Concomitant]
  12. STRESPORIN [Concomitant]
  13. DIAVCIN [Concomitant]

REACTIONS (3)
  - Arthritis [None]
  - Muscle spasms [None]
  - Insomnia [None]
